FAERS Safety Report 9559989 (Version 1)
Quarter: 2013Q3

REPORT INFORMATION
  Report Type: Spontaneous
  Country: US (occurrence: None)
  Receive Date: 20130906
  Receipt Date: 20130906
  Transmission Date: 20140515
  Serious: Yes (Hospitalization)
  Sender: FDA-Public Use
  Company Number: 163-POMAL-13074671

PATIENT
  Age: 72 Year
  Sex: Female
  Weight: 87.54 kg

DRUGS (26)
  1. POMALYST [Suspect]
     Indication: PLASMA CELL MYELOMA
     Dosage: 1 IN 1 D
     Route: 048
     Dates: start: 20130506, end: 2013
  2. ACETAMINOPHEN (PARACETAMOL) [Concomitant]
  3. ASPIRINE (ACETYLSALICYLIC ACID) (ENTERIC-COATED TABLET) [Concomitant]
  4. HYDROCODONE/ACETAMINOPHEN (REMEDEINE) [Concomitant]
  5. CADEXOMER IODINE (CADEXOMER IODINE) [Concomitant]
  6. MACRODANTIN (NITROFURANTOIN) [Concomitant]
  7. METOPROLOL SUCCINATE (METOPROLOL SUCCINATE) [Concomitant]
  8. MOMETASONE FUROATE (MOMETASONE FUROATE) (AEROSOL FOR INHALATION) [Concomitant]
  9. PREDNISONE (PREDNISONE) [Concomitant]
  10. SYMBICORT (SYMBICORT TURBUHALER ^DRACO^) (AEROSOL FOR INHALATION) [Concomitant]
  11. TRIAMTERENE/HYDROCHLOROTHIAZID (CAPSULES) [Concomitant]
  12. VENTOLIN HFA (SALBUTAMOL SULFATE) [Concomitant]
  13. VICOPREFEN (VICOPROFEN) [Concomitant]
  14. AREDIA (PAMIDRONATE DISODIUM) [Concomitant]
  15. DUONEB (COMBIVENT) [Concomitant]
  16. KLOR-CON (POTASSIUM CHLORIDE) [Concomitant]
  17. LASIX (FUROSEMIDE) [Concomitant]
  18. MIRALAX (MACROGOL) [Concomitant]
  19. VENTOLIN (SALBUTAMOL) [Concomitant]
  20. LACTULOSE (LACTULOSE) [Concomitant]
  21. ZOFRAN (ONDANSETRON HYDROCHLORIDE) [Concomitant]
  22. LOVENOX (HEPARIN-FRACTION, SODIUM SALT) [Concomitant]
  23. MORPHINE (MORPHINE) [Concomitant]
  24. IMIPENEM/CILASTATIN (IMIPENEM) [Concomitant]
  25. SOLUMEDROL (METHYLPREDNISOLONE SODIUM SUCCINATE) [Concomitant]
  26. LEVALBUTEROL (LEVOSALBUTAMOL) [Concomitant]

REACTIONS (3)
  - Chronic obstructive pulmonary disease [None]
  - Pneumonia [None]
  - Malaise [None]
